FAERS Safety Report 21122481 (Version 12)
Quarter: 2023Q1

REPORT INFORMATION
  Report Type: Spontaneous
  Country: CA (occurrence: CA)
  Receive Date: 20220723
  Receipt Date: 20230309
  Transmission Date: 20230417
  Serious: Yes (Other)
  Sender: FDA-Public Use
  Company Number: CA-CELLTRION INC.-2022CA010933

PATIENT

DRUGS (13)
  1. INFLECTRA [Suspect]
     Active Substance: INFLIXIMAB-DYYB
     Indication: Colitis ulcerative
     Dosage: 5MG/KG, Q 2, 6 WEEK DOSE, THEN Q 8 WEEKS HOSPITAL START 21MAY2022
     Route: 042
     Dates: start: 20220521
  2. INFLECTRA [Suspect]
     Active Substance: INFLIXIMAB-DYYB
     Dosage: 5MG/KG, Q 2, 6 WEEK DOSE, THEN Q 8 WEEKS
     Route: 042
     Dates: start: 20220620
  3. INFLECTRA [Suspect]
     Active Substance: INFLIXIMAB-DYYB
     Dosage: 5MG/KG, Q 2, 6 WEEK DOSE, THEN Q 8 WEEKS
     Route: 042
     Dates: start: 20220718
  4. INFLECTRA [Suspect]
     Active Substance: INFLIXIMAB-DYYB
     Dosage: 10 MG/KG, EVERY 8 WEEK
     Route: 042
     Dates: start: 20220913
  5. INFLECTRA [Suspect]
     Active Substance: INFLIXIMAB-DYYB
     Dosage: 10 MG/KG, EVERY 8 WEEKS
     Route: 042
     Dates: start: 20221108
  6. INFLECTRA [Suspect]
     Active Substance: INFLIXIMAB-DYYB
     Dosage: 10 MG/KG, EVERY 8 WEEKS
     Route: 042
     Dates: start: 20230103
  7. INFLECTRA [Suspect]
     Active Substance: INFLIXIMAB-DYYB
     Dosage: 10 MG/KG, EVERY 8 WEEKS
     Route: 042
     Dates: start: 20230228
  8. ASACOL [Concomitant]
     Active Substance: MESALAMINE
     Dosage: 1 DF, 8 TABS
     Route: 065
     Dates: start: 2020
  9. AZATHIOPRINE [Concomitant]
     Active Substance: AZATHIOPRINE
     Dosage: UNK, GAVE UP
  10. AZATHIOPRINE [Concomitant]
     Active Substance: AZATHIOPRINE
     Dosage: UNK, DAILY, 2 TABS
     Dates: start: 20221003
  11. PREDNISONE [Concomitant]
     Active Substance: PREDNISONE
     Dosage: 1 DF, DOSAGE NOT AVAILABLE
     Route: 065
     Dates: start: 202205
  12. SULFATRIM [Concomitant]
     Active Substance: SULFAMETHOXAZOLE\TRIMETHOPRIM
     Dosage: UNK, FOR TWO WEEKS
  13. TYLENOL [Concomitant]
     Active Substance: ACETAMINOPHEN
     Dosage: UNK

REACTIONS (13)
  - Condition aggravated [Recovering/Resolving]
  - Drug ineffective [Unknown]
  - Off label use [Unknown]
  - Blood pressure increased [Recovered/Resolved]
  - Insomnia [Not Recovered/Not Resolved]
  - Abdominal pain [Not Recovered/Not Resolved]
  - Headache [Recovering/Resolving]
  - Hunger [Unknown]
  - Malaise [Unknown]
  - Hypertonic bladder [Unknown]
  - Back pain [Not Recovered/Not Resolved]
  - Hypertension [Not Recovered/Not Resolved]
  - Fatigue [Not Recovered/Not Resolved]

NARRATIVE: CASE EVENT DATE: 20220101
